FAERS Safety Report 15287787 (Version 4)
Quarter: 2018Q4

REPORT INFORMATION
  Report Type: Report from Study
  Country: None (occurrence: ES)
  Receive Date: 20180817
  Receipt Date: 20181030
  Transmission Date: 20190204
  Serious: Yes (Other)
  Sender: FDA-Public Use
  Company Number: ES-ABBVIE-18S-144-2444548-00

PATIENT
  Age: 70 Year
  Sex: Female
  Weight: 50 kg

DRUGS (3)
  1. DUODOPA [Suspect]
     Active Substance: CARBIDOPA\LEVODOPA
     Dosage: 16TH (MD: 5+3; CD: 4ML/H; ED: 3ML)?USING UP TO 8 EXTRA DOSES/DAY
     Route: 050
     Dates: start: 20160223
  2. DUODOPA [Suspect]
     Active Substance: CARBIDOPA\LEVODOPA
     Indication: PARKINSON^S DISEASE
     Route: 050
  3. DUODOPA [Suspect]
     Active Substance: CARBIDOPA\LEVODOPA
     Dosage: MD= 8.5 ML, CD=3.5 ML/H, ED= 1.5 ML
     Route: 050

REACTIONS (18)
  - On and off phenomenon [Not Recovered/Not Resolved]
  - Obsessive thoughts [Unknown]
  - Illusion [Not Recovered/Not Resolved]
  - Delirium [Unknown]
  - Insomnia [Unknown]
  - Malnutrition [Unknown]
  - Incorrect drug administration rate [Not Recovered/Not Resolved]
  - Dopamine dysregulation syndrome [Unknown]
  - Anxiety [Unknown]
  - Hallucination, visual [Recovered/Resolved]
  - Drug abuse [Not Recovered/Not Resolved]
  - Movement disorder [Not Recovered/Not Resolved]
  - Mood swings [Unknown]
  - General physical health deterioration [Unknown]
  - Poor personal hygiene [Unknown]
  - Depression [Not Recovered/Not Resolved]
  - Decreased appetite [Not Recovered/Not Resolved]
  - Stereotypy [Unknown]

NARRATIVE: CASE EVENT DATE: 201807
